FAERS Safety Report 5518190-6 (Version None)
Quarter: 2007Q4

REPORT INFORMATION
  Report Type: 
  Country: None (occurrence: None)
  Receive Date: 20071113
  Receipt Date: 20071113
  Transmission Date: 20080405
  Serious: Yes (Hospitalization)
  Sender: FDA-Public Use
  Company Number: None

PATIENT
  Age: 63 Year
  Sex: Female

DRUGS (4)
  1. VINCRISTINE [Suspect]
     Indication: NON-HODGKIN'S LYMPHOMA
     Dosage: 2.0MG IVP
     Route: 042
     Dates: start: 20071022
  2. PREDNISONE TAB [Suspect]
     Indication: NON-HODGKIN'S LYMPHOMA
     Dosage: 100MG PO
     Route: 048
     Dates: start: 20071023, end: 20071027
  3. CYTOXAN [Suspect]
     Indication: NON-HODGKIN'S LYMPHOMA
     Dosage: 750MG/M2
     Dates: start: 20071022
  4. ADRIAMYCIN [Suspect]
     Indication: NON-HODGKIN'S LYMPHOMA
     Dosage: 50MG/M2
     Dates: start: 20071022

REACTIONS (2)
  - FEBRILE NEUTROPENIA [None]
  - PHARYNGOLARYNGEAL PAIN [None]
